FAERS Safety Report 6263293-4 (Version None)
Quarter: 2009Q3

REPORT INFORMATION
  Report Type: 
  Country: None (occurrence: None)
  Receive Date: 20090710
  Receipt Date: 20090701
  Transmission Date: 20100115
  Serious: Yes (Hospitalization)
  Sender: FDA-Public Use
  Company Number: AU-WYE-G03960609

PATIENT
  Sex: Female

DRUGS (5)
  1. EFFEXOR XR [Suspect]
     Indication: BIPOLAR I DISORDER
     Dosage: 150MG IN THE MORNING
     Route: 048
  2. EFFEXOR XR [Suspect]
     Indication: POST-TRAUMATIC STRESS DISORDER
     Dosage: 150MG IN THE MORNING
     Route: 048
  3. VALIUM [Concomitant]
  4. SEROQUEL [Concomitant]
  5. XANAX [Concomitant]

REACTIONS (9)
  - BLOOD CHROMOGRANIN A INCREASED [None]
  - CONDITION AGGRAVATED [None]
  - DRUG EFFECT DECREASED [None]
  - DRUG WITHDRAWAL SYNDROME [None]
  - MANIA [None]
  - MOOD SWINGS [None]
  - PSORIASIS [None]
  - UNEVALUABLE EVENT [None]
  - WEIGHT INCREASED [None]
